FAERS Safety Report 9691689 (Version 1)
Quarter: 2013Q4

REPORT INFORMATION
  Report Type: Spontaneous
  Country: IN (occurrence: IN)
  Receive Date: 20131115
  Receipt Date: 20131115
  Transmission Date: 20140711
  Serious: Yes (Other)
  Sender: FDA-Public Use
  Company Number: IN-B.I. PHARMACEUTICALS,INC./RIDGEFIELD-2013-BI-37065IG

PATIENT
  Age: 70 Year
  Sex: Female
  Weight: 60 kg

DRUGS (4)
  1. PRADAXA [Suspect]
     Indication: CEREBROVASCULAR ACCIDENT PROPHYLAXIS
     Dosage: 220 MG
     Route: 048
     Dates: end: 20131107
  2. PRADAXA [Suspect]
     Indication: ATRIAL FIBRILLATION
  3. ATORVA [Concomitant]
  4. ANTIEPILEPTIC DRUGS [Concomitant]

REACTIONS (1)
  - Deep vein thrombosis [Recovered/Resolved]
